FAERS Safety Report 16570712 (Version 1)
Quarter: 2019Q3

REPORT INFORMATION
  Report Type: Spontaneous
  Country: US (occurrence: US)
  Receive Date: 20190712
  Receipt Date: 20190712
  Transmission Date: 20191004
  Serious: Yes (Other)
  Sender: FDA-Public Use
  Company Number: None

PATIENT
  Age: 38 Year
  Sex: Female
  Weight: 80.1 kg

DRUGS (3)
  1. ORILISSA, EGAGOLIX [Suspect]
     Active Substance: ELAGOLIX
     Indication: ENDOMETRIOSIS
     Dosage: ?          QUANTITY:1 TABLET(S);?
     Dates: start: 20190516, end: 20190712
  2. ORILISSA [Concomitant]
     Active Substance: ELAGOLIX SODIUM
  3. WELLBUTRIN [Concomitant]
     Active Substance: BUPROPION HYDROCHLORIDE

REACTIONS (4)
  - Thrombophlebitis superficial [None]
  - Contusion [None]
  - Muscle spasms [None]
  - Swelling [None]

NARRATIVE: CASE EVENT DATE: 20190707
